FAERS Safety Report 6915902-1 (Version None)
Quarter: 2010Q3

REPORT INFORMATION
  Report Type: 
  Country: None (occurrence: None)
  Receive Date: 20100810
  Receipt Date: 20100805
  Transmission Date: 20110219
  Serious: Yes (Death, Life-Threatening)
  Sender: FDA-Public Use
  Company Number: JP-BAYER-200913321BYL

PATIENT
  Age: 69 Year
  Sex: Male
  Weight: 59 kg

DRUGS (11)
  1. NEXAVAR [Suspect]
     Indication: HEPATIC NEOPLASM MALIGNANT
     Dosage: TOTAL DAILY DOSE: 800 MG  UNIT DOSE: 200 MG
     Route: 048
     Dates: start: 20090715, end: 20090729
  2. NEXAVAR [Suspect]
     Dosage: UNIT DOSE: 200 MG
     Route: 048
     Dates: start: 20090730, end: 20090813
  3. CEFOCEF [Suspect]
     Indication: PYREXIA
     Route: 042
     Dates: start: 20090807, end: 20090812
  4. RESLIN [Concomitant]
     Indication: INSOMNIA
     Route: 048
     Dates: start: 20071114, end: 20090905
  5. URSO 250 [Concomitant]
     Route: 048
     Dates: start: 20071212, end: 20090905
  6. ZYLORIC [Concomitant]
     Route: 048
     Dates: start: 20080207, end: 20090905
  7. MYSLEE [Concomitant]
     Indication: INSOMNIA
     Route: 048
     Dates: start: 20080910, end: 20090905
  8. DUROTEP [Concomitant]
     Route: 062
     Dates: start: 20090710, end: 20090907
  9. AMITRIPTYLINE HCL [Concomitant]
     Route: 048
     Dates: start: 20090815, end: 20090905
  10. OMEPRAL [Concomitant]
     Route: 048
     Dates: start: 20090522, end: 20090905
  11. URIEF [Concomitant]
     Indication: NEUROGENIC BLADDER
     Route: 048
     Dates: start: 20071114, end: 20090905

REACTIONS (6)
  - DIARRHOEA [None]
  - GASTROINTESTINAL HAEMORRHAGE [None]
  - PLATELET COUNT DECREASED [None]
  - PNEUMONIA [None]
  - PYREXIA [None]
  - WHITE BLOOD CELL COUNT DECREASED [None]
